FAERS Safety Report 9381963 (Version 2)
Quarter: 2014Q1

REPORT INFORMATION
  Report Type: Report from Study
  Country: CA (occurrence: CA)
  Receive Date: 20130703
  Receipt Date: 20140217
  Transmission Date: 20141002
  Serious: Yes (Life-Threatening, Other)
  Sender: FDA-Public Use
  Company Number: CA-JNJFOC-20130605002

PATIENT
  Age: 85 Year
  Sex: Female
  Weight: 57 kg

DRUGS (13)
  1. REMICADE [Suspect]
     Indication: ANKYLOSING SPONDYLITIS
     Route: 042
     Dates: start: 20050922
  2. TYLENOL3 [Concomitant]
     Route: 065
  3. MIRTAZAPINE [Concomitant]
     Indication: ANTIDEPRESSANT THERAPY
     Route: 065
  4. VENLAFAXINE XR [Concomitant]
     Indication: ANTIDEPRESSANT THERAPY
     Route: 065
  5. SIMVASTATIN [Concomitant]
     Indication: BLOOD CHOLESTEROL
     Route: 048
  6. OMEPRAZOLE [Concomitant]
     Indication: GASTROOESOPHAGEAL REFLUX DISEASE
     Route: 048
  7. METOPROLOL [Concomitant]
     Indication: CARDIAC DISORDER
     Route: 065
  8. SYNTHROID [Concomitant]
     Indication: HYPOTHYROIDISM
     Route: 065
  9. FOLIC ACID [Concomitant]
     Indication: ARTHRITIS
     Route: 065
  10. CELEBREX [Concomitant]
     Indication: ARTHRITIS
     Route: 065
  11. CALTRATE [Concomitant]
     Indication: ARTHRITIS
     Route: 065
  12. SPIRIVA [Concomitant]
     Indication: CHRONIC OBSTRUCTIVE PULMONARY DISEASE
     Route: 065
  13. MTX [Concomitant]
     Indication: ANKYLOSING SPONDYLITIS
     Route: 065

REACTIONS (3)
  - Pneumonia [Recovering/Resolving]
  - Wrist fracture [Unknown]
  - Back pain [Unknown]
